FAERS Safety Report 6072278-2 (Version None)
Quarter: 2009Q1

REPORT INFORMATION
  Report Type: 
  Country: None (occurrence: None)
  Receive Date: 20090206
  Receipt Date: 20090206
  Transmission Date: 20090719
  Serious: Yes (Disabling, Other)
  Sender: FDA-Public Use
  Company Number: None

PATIENT
  Age: 25 Year
  Sex: Female
  Weight: 90.7194 kg

DRUGS (2)
  1. SERTRALINE [Suspect]
     Indication: ADJUSTMENT DISORDER
     Dosage: 50MG  -1 TABLET- EVERY EVENING PO
     Route: 048
     Dates: start: 20090123, end: 20090201
  2. ONE A DAY PRENATAL VITAMIN [Concomitant]

REACTIONS (10)
  - ANURIA [None]
  - BACTERIA URINE IDENTIFIED [None]
  - BLOOD URINE PRESENT [None]
  - CHROMATURIA [None]
  - INFECTION [None]
  - PROTEIN URINE PRESENT [None]
  - URINARY HESITATION [None]
  - URINARY RETENTION [None]
  - URINE ABNORMALITY [None]
  - URINE FLOW DECREASED [None]
